FAERS Safety Report 7791464-4 (Version None)
Quarter: 2011Q4

REPORT INFORMATION
  Report Type: 
  Country: None (occurrence: None)
  Receive Date: 20111003
  Receipt Date: 20110923
  Transmission Date: 20120403
  Serious: Yes (Hospitalization)
  Sender: FDA-Public Use
  Company Number: US-US-EMD SERONO, INC.-7085419

PATIENT
  Sex: Male

DRUGS (3)
  1. COZAAR [Concomitant]
     Indication: HYPERTENSION
  2. REBIF [Suspect]
     Indication: MULTIPLE SCLEROSIS
     Route: 058
     Dates: start: 20110409
  3. UNSPECIFIED MEDICATION [Concomitant]
     Indication: MIGRAINE
     Dates: end: 20110701

REACTIONS (3)
  - ARTERIAL OCCLUSIVE DISEASE [None]
  - HEADACHE [None]
  - MYOCARDIAL INFARCTION [None]
